FAERS Safety Report 6866496-0 (Version None)
Quarter: 2010Q3

REPORT INFORMATION
  Report Type: 
  Country: None (occurrence: None)
  Receive Date: 20100722
  Receipt Date: 20100714
  Transmission Date: 20110219
  Serious: Yes (Hospitalization)
  Sender: FDA-Public Use
  Company Number: US-ASTRAZENECA-2009SE06447

PATIENT
  Age: 50 Year
  Sex: Female

DRUGS (2)
  1. TOPROL-XL [Suspect]
     Indication: ANGINA PECTORIS
     Route: 048
     Dates: start: 19990101, end: 20050101
  2. TOPROL-XL [Suspect]
     Route: 048
     Dates: start: 19990101, end: 20090501

REACTIONS (5)
  - ASTHENIA [None]
  - CORONARY ARTERIAL STENT INSERTION [None]
  - FEELING ABNORMAL [None]
  - HYPERTROPHIC CARDIOMYOPATHY [None]
  - THROMBOSIS [None]
